FAERS Safety Report 10137558 (Version 1)
Quarter: 2014Q2

REPORT INFORMATION
  Report Type: Spontaneous
  Country: US (occurrence: US)
  Receive Date: 20140429
  Receipt Date: 20140429
  Transmission Date: 20141212
  Serious: Yes (Hospitalization)
  Sender: FDA-Public Use
  Company Number: US-BAYER-2014-059764

PATIENT
  Age: 53 Year
  Sex: Female

DRUGS (20)
  1. YAZ [Suspect]
     Dosage: UNK
     Dates: end: 20110505
  2. OCELLA [Suspect]
  3. METHYLPREDNISOLONE [Concomitant]
     Dosage: 4 MG,  DOSE PACK
     Route: 048
     Dates: start: 20110408
  4. IBUPROFEN [Concomitant]
     Dosage: 800 MG, UNK
     Route: 048
     Dates: start: 20110412
  5. ALBUTEROL [Concomitant]
     Dosage: UNK UNK, PRN
  6. ADVAIR [Concomitant]
     Dosage: 1 PUFF TWICE A DAY
  7. XOPENEX [Concomitant]
     Dosage: 0.63 MG/ML, UNK
  8. WELLBUTRIN [Concomitant]
     Dosage: 150 MG, DAILY
     Route: 048
  9. SINGULAIR [Concomitant]
     Dosage: 10 MG, DAILY
     Route: 048
  10. GABAPENTIN [Concomitant]
     Dosage: 300 MG, UNK
     Route: 048
  11. LORAZEPAM [Concomitant]
     Dosage: 0.5 MG, UNK
     Route: 048
  12. VERAMYST [Concomitant]
     Dosage: 1 SPAY DAILY
  13. PLAQUENIL [Concomitant]
     Indication: MIXED CONNECTIVE TISSUE DISEASE
     Dosage: 200 MG, BID
     Route: 048
  14. IRON SULFATE [Concomitant]
     Dosage: 25 MG, DAILY
     Route: 048
  15. MAXALT [Concomitant]
     Dosage: UNK
     Route: 048
  16. ATIVAN [Concomitant]
     Dosage: UNK UNK, PRN
     Route: 048
  17. PROVERA [Concomitant]
  18. TOPAMAX [Concomitant]
     Indication: MIGRAINE
  19. TOPIRAMATE [Concomitant]
     Indication: HEADACHE
  20. PROGESTINE [Concomitant]

REACTIONS (1)
  - Pulmonary embolism [None]
